FAERS Safety Report 24578539 (Version 3)
Quarter: 2025Q1

REPORT INFORMATION
  Report Type: Report from Study
  Country: CA (occurrence: CA)
  Receive Date: 20241105
  Receipt Date: 20250206
  Transmission Date: 20250408
  Serious: Yes (Other)
  Sender: TAKEDA
  Company Number: CA-TAKEDA-2024TUS109361

PATIENT
  Age: 83 Year
  Sex: Male

DRUGS (5)
  1. VEDOLIZUMAB [Suspect]
     Active Substance: VEDOLIZUMAB
     Indication: Colitis ulcerative
  2. VEDOLIZUMAB [Suspect]
     Active Substance: VEDOLIZUMAB
     Dosage: 300 MILLIGRAM, Q4WEEKS
     Dates: start: 20241127
  3. VEDOLIZUMAB [Suspect]
     Active Substance: VEDOLIZUMAB
     Dosage: 300 MILLIGRAM, Q4WEEKS
  4. LORAZEPAM [Concomitant]
     Active Substance: LORAZEPAM
  5. COLESEVELAM [Concomitant]
     Active Substance: COLESEVELAM
     Dosage: 625 MILLIGRAM, BID

REACTIONS (5)
  - Colitis ulcerative [Unknown]
  - Rectal haemorrhage [Unknown]
  - Off label use [Unknown]
  - Defaecation urgency [Unknown]
  - Cystitis [Unknown]

NARRATIVE: CASE EVENT DATE: 20241127
